FAERS Safety Report 9369654 (Version 1)
Quarter: 2013Q2

REPORT INFORMATION
  Report Type: Spontaneous
  Country: US (occurrence: None)
  Receive Date: 20130625
  Receipt Date: 20130625
  Transmission Date: 20140414
  Serious: Yes (Life-Threatening)
  Sender: FDA-Public Use
  Company Number: None

PATIENT
  Age: 62 Year
  Sex: Male
  Weight: 82.5 kg

DRUGS (2)
  1. PROTAMINE [Suspect]
     Indication: HEPARIN NEUTRALISATION THERAPY
     Route: 042
     Dates: start: 20130531, end: 20130531
  2. PROTAMINE [Suspect]
     Indication: HEPARIN NEUTRALISATION THERAPY
     Dates: start: 20130531, end: 20130531

REACTIONS (4)
  - Drug ineffective [None]
  - Coagulation time prolonged [None]
  - Activated partial thromboplastin time prolonged [None]
  - Product quality issue [None]
